FAERS Safety Report 24587324 (Version 1)
Quarter: 2024Q4

REPORT INFORMATION
  Report Type: Spontaneous
  Country: US (occurrence: US)
  Receive Date: 20241107
  Receipt Date: 20241107
  Transmission Date: 20250114
  Serious: Yes (Hospitalization, Other)
  Sender: ALEMBIC
  Company Number: US-ALEMBIC PHARMACUETICALS LIMITED-2024SCAL001575

PATIENT

DRUGS (3)
  1. BUPROPION HYDROCHLORIDE [Suspect]
     Active Substance: BUPROPION HYDROCHLORIDE
     Indication: Bipolar disorder
     Dosage: UNK
     Route: 065
  2. QUETIAPINE FUMARATE [Suspect]
     Active Substance: QUETIAPINE FUMARATE
     Indication: Bipolar disorder
     Dosage: UNK
     Route: 065
  3. GABAPENTIN [Suspect]
     Active Substance: GABAPENTIN
     Indication: Bipolar disorder
     Dosage: UNK
     Route: 065

REACTIONS (19)
  - Distributive shock [Unknown]
  - Toxicity to various agents [Unknown]
  - Nervous system disorder [Unknown]
  - Areflexia [Recovering/Resolving]
  - Drug screen positive [Unknown]
  - Shock [Unknown]
  - Lactic acidosis [Unknown]
  - Oxygen saturation decreased [Unknown]
  - Hypothermia [Unknown]
  - Aphasia [Unknown]
  - Cerebrovascular accident [Unknown]
  - Respiratory rate increased [Unknown]
  - Mydriasis [Unknown]
  - Pulmonary embolism [Unknown]
  - Hypotension [Unknown]
  - Myoclonus [Recovered/Resolved]
  - Coma [Recovered/Resolved]
  - Confusional state [Unknown]
  - Intentional overdose [Unknown]
